FAERS Safety Report 9049769 (Version 1)
Quarter: 2013Q1

REPORT INFORMATION
  Report Type: Spontaneous
  Country: US (occurrence: US)
  Receive Date: 20130205
  Receipt Date: 20130205
  Transmission Date: 20140127
  Serious: Yes (Hospitalization)
  Sender: FDA-Public Use
  Company Number: US-BAYER-2013-014275

PATIENT
  Age: 43 Year
  Sex: Female

DRUGS (10)
  1. YASMIN [Suspect]
  2. OCELLA [Suspect]
  3. YAZ [Suspect]
  4. LEVOTHYROXINE [Concomitant]
     Dosage: 0.05 MG, UNK
     Route: 048
     Dates: start: 20100323, end: 20101216
  5. PREDNISONE [Concomitant]
     Dosage: 20 MG, UNK
     Route: 048
     Dates: start: 20100327, end: 20100406
  6. TRIAMTERENE AND HYDROCHLOROTHIAZID [Concomitant]
     Dosage: 37.5 MG, UNK
     Route: 048
     Dates: start: 20100329
  7. TRIAMTERENE AND HYDROCHLOROTHIAZID [Concomitant]
     Dosage: 25 MG, UNK
     Route: 048
     Dates: start: 20100329
  8. HYDROXYZINE HCL [Concomitant]
     Dosage: 25 MG, UNK
     Route: 048
     Dates: start: 20100329
  9. FAMOTIDINE [Concomitant]
     Dosage: 20 MG, UNK
     Route: 048
     Dates: start: 20100329
  10. ZYRTEK [Concomitant]

REACTIONS (1)
  - Deep vein thrombosis [None]
